FAERS Safety Report 10040677 (Version 1)
Quarter: 2014Q1

REPORT INFORMATION
  Report Type: Spontaneous
  Country: US (occurrence: US)
  Receive Date: 20140327
  Receipt Date: 20140327
  Transmission Date: 20141002
  Serious: No
  Sender: FDA-Public Use
  Company Number: US-B.I. PHARMACEUTICALS,INC./RIDGEFIELD-2014-BI-12008BP

PATIENT
  Sex: Female

DRUGS (3)
  1. COMBIVENT [Suspect]
     Indication: CHRONIC OBSTRUCTIVE PULMONARY DISEASE
     Dosage: STRENGTH: 20 MCG /100 MCG
     Route: 055
     Dates: start: 2012
  2. ADVAIR [Concomitant]
     Dosage: FORMULATION: (INHALATION AEROSOL) STRENGTH: 1 INHALATION; DAILY DOSE: 2 INHALATIONS
     Route: 055
  3. RENVELA [Concomitant]
     Indication: RENAL FAILURE CHRONIC
     Dosage: 2400 MG
     Route: 048

REACTIONS (1)
  - Drug ineffective [Not Recovered/Not Resolved]
